FAERS Safety Report 5884721-X (Version None)
Quarter: 2008Q3

REPORT INFORMATION
  Report Type: 
  Country: None (occurrence: None)
  Receive Date: 20080912
  Receipt Date: 20080828
  Transmission Date: 20090109
  Serious: Yes (Other)
  Sender: FDA-Public Use
  Company Number: 2008S1008649

PATIENT
  Age: 64 Year
  Sex: Male

DRUGS (4)
  1. SODIUM PHOSPHATE DIBASIC/SODIUM PHOSPHATE MONOBASIC (ANHYDRATE) [Suspect]
     Indication: COLONOSCOPY
     Dosage: PO
     Route: 048
  2. ESOMEPRAZOLE [Concomitant]
  3. NIFEDIPINE [Concomitant]
  4. OXYCODONE HCL [Concomitant]

REACTIONS (30)
  - ACUTE PRERENAL FAILURE [None]
  - ADRENAL ADENOMA [None]
  - ANOREXIA [None]
  - ATELECTASIS [None]
  - BACTERIAL INFECTION [None]
  - BLOOD PRESSURE SYSTOLIC INCREASED [None]
  - DEHYDRATION [None]
  - ENTEROCOCCAL INFECTION [None]
  - GASTRITIS [None]
  - GASTROOESOPHAGEAL REFLUX DISEASE [None]
  - HAEMATOCHEZIA [None]
  - HAEMORRHOIDS [None]
  - HEART RATE DECREASED [None]
  - HELICOBACTER INFECTION [None]
  - HEPATIC CYST [None]
  - HYPERHIDROSIS [None]
  - HYPOPHAGIA [None]
  - JOINT RANGE OF MOTION DECREASED [None]
  - JUGULAR VEIN DISTENSION [None]
  - LEFT ATRIAL DILATATION [None]
  - NEPHROPATHY [None]
  - OEDEMA [None]
  - OPIATES POSITIVE [None]
  - PANCREATITIS ACUTE [None]
  - PROTEUS INFECTION [None]
  - RENAL CYST [None]
  - RENAL INJURY [None]
  - RENAL TUBULAR NECROSIS [None]
  - RETCHING [None]
  - SINUS BRADYCARDIA [None]
